FAERS Safety Report 14265374 (Version 1)
Quarter: 2017Q4

REPORT INFORMATION
  Report Type: Spontaneous
  Country: US (occurrence: US)
  Receive Date: 20171208
  Receipt Date: 20171208
  Transmission Date: 20180321
  Serious: Yes (Other)
  Sender: FDA-Public Use
  Company Number: US-IPSEN BIOPHARMACEUTICALS, INC.-2017-15443

PATIENT
  Age: 67 Year
  Sex: Male

DRUGS (6)
  1. XERMELO [Suspect]
     Active Substance: TELOTRISTAT ETHYL
     Indication: CARCINOID TUMOUR OF THE SMALL BOWEL
     Route: 048
     Dates: start: 20170928
  2. SOMATULINE [Concomitant]
     Active Substance: LANREOTIDE ACETATE
     Dates: start: 20171103
  3. KLONOPIN [Concomitant]
     Active Substance: CLONAZEPAM
  4. FLOMAX [Concomitant]
     Active Substance: TAMSULOSIN HYDROCHLORIDE
     Indication: PRODUCT USED FOR UNKNOWN INDICATION
     Dosage: NOT REPORTED
     Route: 065
  5. METOPROLOL. [Concomitant]
     Active Substance: METOPROLOL
  6. VITAMIN D [Concomitant]
     Active Substance: CHOLECALCIFEROL

REACTIONS (2)
  - Metastatic neoplasm [Unknown]
  - Thyroid cancer [Unknown]

NARRATIVE: CASE EVENT DATE: 201709
